FAERS Safety Report 23224985 (Version 3)
Quarter: 2025Q1

REPORT INFORMATION
  Report Type: Report from Study
  Country: GB (occurrence: GB)
  Receive Date: 20231124
  Receipt Date: 20250109
  Transmission Date: 20250408
  Serious: Yes (Hospitalization)
  Sender: ROCHE
  Company Number: GB-ROCHE-3191866

PATIENT
  Sex: Male

DRUGS (1)
  1. RISDIPLAM [Suspect]
     Active Substance: RISDIPLAM
     Indication: Product used for unknown indication
     Dosage: 0.75MG/ML 1 PER WEEK,
     Route: 065
     Dates: start: 202012

REACTIONS (6)
  - Illness [Unknown]
  - Spinal disorder [Unknown]
  - Product dose omission issue [Unknown]
  - Influenza [Unknown]
  - Cellulitis [Unknown]
  - Viral rash [Unknown]
